FAERS Safety Report 7722274-1 (Version None)
Quarter: 2011Q3

REPORT INFORMATION
  Report Type: 
  Country: None (occurrence: None)
  Receive Date: 20110831
  Receipt Date: 20110822
  Transmission Date: 20111222
  Serious: Yes (Hospitalization, Other)
  Sender: FDA-Public Use
  Company Number: US-ELI_LILLY_AND_COMPANY-US201108000184

PATIENT
  Sex: Male

DRUGS (4)
  1. GLUCOPHAGE [Concomitant]
  2. BYETTA [Suspect]
     Dosage: UNK
     Dates: start: 20071101, end: 20080404
  3. GLYBURIDE [Concomitant]
  4. LISINOPRIL [Concomitant]

REACTIONS (5)
  - CHOLECYSTITIS [None]
  - PANCREATITIS [None]
  - PANCREATIC PSEUDOCYST [None]
  - PANCREATITIS ACUTE [None]
  - PANCREATITIS CHRONIC [None]
